FAERS Safety Report 9124933 (Version 1)
Quarter: 2013Q1

REPORT INFORMATION
  Report Type: Spontaneous
  Country: US (occurrence: US)
  Receive Date: 20130227
  Receipt Date: 20130227
  Transmission Date: 20140127
  Serious: Yes (Death)
  Sender: FDA-Public Use
  Company Number: PHHY2013US019264

PATIENT
  Age: 73 Year
  Sex: Male

DRUGS (1)
  1. BUFFERIN EXTRA STRENGTH [Suspect]
     Indication: ARTHRITIS
     Dosage: 3 DF, QD
     Route: 048

REACTIONS (2)
  - Death [Fatal]
  - Incorrect drug administration duration [Unknown]
